FAERS Safety Report 4968649-5 (Version None)
Quarter: 2006Q2

REPORT INFORMATION
  Report Type: 
  Country: None (occurrence: None)
  Receive Date: 20060405
  Receipt Date: 20060322
  Transmission Date: 20061013
  Serious: Yes (Hospitalization)
  Sender: FDA-Public Use
  Company Number: 2006020737

PATIENT
  Age: 71 Year
  Sex: Male

DRUGS (14)
  1. ESTRACYT (ESTRAMUSTINE PHOSPHATE SODIUM) [Suspect]
     Indication: PROSTATE CANCER
     Dosage: 560 MG (560 MG, 1 IN 1 D), ORAL
     Route: 048
     Dates: start: 20031022
  2. NIFEDIPINE [Suspect]
     Indication: HYPERTENSION
     Dosage: 40 MG (40 MG, 1 IN 1 D), ORAL
     Route: 048
     Dates: start: 20050119
  3. AMLODIPINE [Suspect]
     Indication: HYPERTENSION
     Dosage: 5 MG (5 MG, 1 IN 1 D), ORAL
     Route: 048
     Dates: start: 20010928, end: 20020625
  4. SPIRONOLACTONE [Suspect]
     Indication: HYPERTENSION
     Dosage: 25 MG (25 MG, 1 IN 1 D), ORAL
     Route: 048
     Dates: start: 20011005, end: 20020723
  5. SELECTOL (CELIPROLOL HYDROCHLORIDE) [Suspect]
     Indication: HYPERTENSION
     Dosage: 200 MG (200 MG, 1 IN 1 D), ORAL
     Route: 048
     Dates: start: 20041210
  6. ISOSORBIDE MONONITRATE [Suspect]
     Indication: ANGINA PECTORIS
     Dosage: 40 MG (40 MG, 1 IN 1 D), ORAL
     Route: 048
     Dates: start: 20011012
  7. DILTIAZEM [Suspect]
     Indication: HYPERTENSION
     Dosage: 100 MG (100 MG, 1 IN 1 D), ORAL
     Route: 048
     Dates: start: 20010921, end: 20040923
  8. KALLIDINOGENASE (KALLIDINOGENASE) [Suspect]
     Indication: HYPERTENSION
     Dosage: 20 UNIT (1 IN 1 D), ORAL
     Route: 048
     Dates: start: 20010921
  9. POTASSIUM CITRATE/SODIUM CITRATE (POTASSIUM CITRATE, SODIUM CITRATE) [Suspect]
     Indication: GOUT
     Dosage: (2 I.U., 1 IN 1 D), ORAL
     Route: 048
     Dates: start: 20020918
  10. CANDESARTAN CILEXETIL (CANDESARTAN CILEXETIL) [Suspect]
     Indication: HYPERTENSION
     Dosage: 8 MG (8 MG, 1 IN 1 D), ORAL
     Route: 048
     Dates: start: 20011019
  11. ALLOPURINOL [Suspect]
     Indication: GOUT
     Dosage: 100 MG (100 MG, 1 IN 1 D), ORAL
     Route: 048
     Dates: start: 20010917
  12. ENALAPRIL MALEATE [Suspect]
     Indication: HYPERTENSION
     Dosage: 5 MG (5 MG, 1 IN 1 D), ORAL
     Route: 048
     Dates: start: 20010928, end: 20011005
  13. ENALAPRIL MALEATE [Suspect]
     Indication: HYPERTENSION
     Dosage: 5 MG (5 MG, 1 IN 1 D), ORAL
     Route: 048
     Dates: start: 20050112
  14. PRAVASTATIN [Suspect]
     Indication: HYPERTENSION
     Dosage: 10 MG (10 MG, 1 IN 1 D), ORAL
     Route: 048
     Dates: start: 20030409, end: 20031217

REACTIONS (5)
  - ANGIONEUROTIC OEDEMA [None]
  - BACTERIAL INFECTION [None]
  - CELLULITIS [None]
  - ODYNOPHAGIA [None]
  - WHITE BLOOD CELL COUNT INCREASED [None]
